FAERS Safety Report 12836692 (Version 1)
Quarter: 2016Q4

REPORT INFORMATION
  Report Type: Spontaneous
  Country: US (occurrence: US)
  Receive Date: 20161011
  Receipt Date: 20161011
  Transmission Date: 20170207
  Serious: Yes (Other)
  Sender: FDA-Public Use
  Company Number: US-JNJFOC-20161008127

PATIENT
  Age: 44 Year
  Sex: Male

DRUGS (7)
  1. VINCRISTINE [Suspect]
     Active Substance: VINCRISTINE
     Indication: DIFFUSE LARGE B-CELL LYMPHOMA
     Dosage: AFTER CHOP THERAPY RELAPSE RECEIVED 5 CYCLES OF R-EPOCH
     Route: 065
  2. DOXORUBICIN HYDROCHLORIDE. [Suspect]
     Active Substance: DOXORUBICIN HYDROCHLORIDE
     Indication: DIFFUSE LARGE B-CELL LYMPHOMA
     Dosage: AFTER CHOP THERAPY RELAPSE RECEIVED 5 CYCLES OF R-EPOCH
     Route: 065
  3. RITUXIMAB [Suspect]
     Active Substance: RITUXIMAB
     Indication: DIFFUSE LARGE B-CELL LYMPHOMA
     Dosage: AFTER CHOP THERAPY RELAPSE RECEIVED 5 CYCLES OF R-EPOCH
     Route: 065
  4. CYCLOPHOSPHAMIDE. [Suspect]
     Active Substance: CYCLOPHOSPHAMIDE
     Indication: DIFFUSE LARGE B-CELL LYMPHOMA
     Dosage: AFTER CHOP THERAPY RELAPSE RECEIVED 5 CYCLES OF R-EPOCH
     Route: 065
  5. PREDNISOLONE. [Suspect]
     Active Substance: PREDNISOLONE
     Indication: DIFFUSE LARGE B-CELL LYMPHOMA
     Dosage: AFTER CHOP THERAPY RELAPSE RECEIVED 5 CYCLES OF R-EPOCH
     Route: 065
  6. ANTIHEMOPHILIC HUMAN PLASMA [Concomitant]
     Route: 065
  7. ETOPOSIDE. [Suspect]
     Active Substance: ETOPOSIDE
     Indication: DIFFUSE LARGE B-CELL LYMPHOMA
     Dosage: AFTER CHOP THERAPY RELAPSE RECEIVED 5 CYCLES OF R-EPOCH
     Route: 065

REACTIONS (3)
  - Gastrointestinal haemorrhage [Unknown]
  - Off label use [Unknown]
  - Product use issue [Unknown]
